FAERS Safety Report 23763595 (Version 2)
Quarter: 2024Q3

REPORT INFORMATION
  Report Type: Spontaneous
  Country: US (occurrence: US)
  Receive Date: 20240419
  Receipt Date: 20240712
  Transmission Date: 20241017
  Serious: No
  Sender: BIOMARIN
  Company Number: US-BIOMARINAP-US-2024-157101

PATIENT

DRUGS (2)
  1. PALYNZIQ [Suspect]
     Active Substance: PEGVALIASE-PQPZ
     Indication: Phenylketonuria
     Dosage: 10 MILLIGRAM
     Route: 058
  2. PALYNZIQ [Suspect]
     Active Substance: PEGVALIASE-PQPZ
     Dosage: 2.5 MILLIGRAM
     Route: 058
     Dates: start: 20240229

REACTIONS (5)
  - Gait inability [Recovered/Resolved]
  - Joint swelling [Recovered/Resolved]
  - Urticaria [Recovered/Resolved]
  - Erythema [Recovered/Resolved]
  - Arthralgia [Recovered/Resolved]

NARRATIVE: CASE EVENT DATE: 20240408
